FAERS Safety Report 9476259 (Version 3)
Quarter: 2014Q3

REPORT INFORMATION
  Report Type: Report from Study
  Country: US (occurrence: US)
  Receive Date: 20130826
  Receipt Date: 20140702
  Transmission Date: 20150326
  Serious: Yes (Hospitalization, Other)
  Sender: FDA-Public Use
  Company Number: US-ALEXION PHARMACEUTICALS INC.-A201302003

PATIENT

DRUGS (2)
  1. SOLIRIS [Suspect]
     Active Substance: ECULIZUMAB
     Dosage: 1200 MG, Q2W
     Route: 042
     Dates: start: 20111128
  2. SOLIRIS [Suspect]
     Active Substance: ECULIZUMAB
     Indication: PAROXYSMAL NOCTURNAL HAEMOGLOBINURIA
     Dosage: UNK
     Route: 042

REACTIONS (10)
  - Nausea [Unknown]
  - Aplastic anaemia [Unknown]
  - Haemolysis [Not Recovered/Not Resolved]
  - Pancytopenia [Unknown]
  - Packed red blood cell transfusion [Unknown]
  - Unevaluable event [Unknown]
  - Cholecystectomy [Unknown]
  - Vomiting [Unknown]
  - Decreased appetite [Unknown]
  - Chromaturia [Unknown]

NARRATIVE: CASE EVENT DATE: 20130817
